FAERS Safety Report 6659877-1 (Version None)
Quarter: 2010Q1

REPORT INFORMATION
  Report Type: 
  Country: None (occurrence: None)
  Receive Date: 20100330
  Receipt Date: 20100330
  Transmission Date: 20100710
  Serious: Yes (Life-Threatening)
  Sender: FDA-Public Use
  Company Number: None

PATIENT
  Sex: Male
  Weight: 95.5 kg

DRUGS (1)
  1. CHANTIX [Suspect]
     Indication: SMOKING CESSATION THERAPY
     Dosage: CURRENTLY 2 OF 0.5 MG PER DAY WITH WATER
     Dates: start: 20100314, end: 20100320

REACTIONS (3)
  - ABNORMAL DREAMS [None]
  - HOMICIDAL IDEATION [None]
  - SUICIDAL IDEATION [None]
